FAERS Safety Report 9174421 (Version 2)
Quarter: 2014Q2

REPORT INFORMATION
  Report Type: Spontaneous
  Country: US (occurrence: US)
  Receive Date: 20130320
  Receipt Date: 20140421
  Transmission Date: 20141212
  Serious: Yes (Hospitalization, Disabling, Other)
  Sender: FDA-Public Use
  Company Number: US-009507513-1303USA009053

PATIENT
  Sex: Female
  Weight: 98.87 kg

DRUGS (5)
  1. FOSAMAX [Suspect]
     Indication: OSTEOPENIA
     Dosage: 10 MG, UNK
     Route: 048
     Dates: start: 200201, end: 200210
  2. FOSAMAX [Suspect]
     Indication: OSTEOPOROSIS
     Dosage: 70 MG, QW
     Route: 048
     Dates: start: 200211, end: 20110312
  3. ALENDRONATE SODIUM [Suspect]
     Indication: OSTEOPENIA
     Dosage: 70 MG, UNK
     Route: 048
     Dates: start: 200803, end: 201105
  4. CORTICOSTEROIDS (UNSPECIFIED) [Concomitant]
     Indication: HYPOPITUITARISM
     Dosage: UNK
     Dates: start: 1979
  5. SYNTHROID [Concomitant]
     Indication: HYPOTHYROIDISM
     Dosage: UNK
     Dates: start: 1979

REACTIONS (21)
  - Intramedullary rod insertion [Unknown]
  - Device connection issue [Unknown]
  - Internal fixation of fracture [Unknown]
  - Anaemia postoperative [Unknown]
  - Femur fracture [Not Recovered/Not Resolved]
  - Low turnover osteopathy [Not Recovered/Not Resolved]
  - Knee arthroplasty [Unknown]
  - Femur fracture [Unknown]
  - Foot fracture [Recovering/Resolving]
  - Adverse event [Unknown]
  - Foot fracture [Unknown]
  - Pseudomonas infection [Unknown]
  - Plantar fascial fibromatosis [Unknown]
  - Muscle strain [Unknown]
  - Sciatica [Unknown]
  - Hypokalaemia [Unknown]
  - Malnutrition [Unknown]
  - Intervertebral disc degeneration [Unknown]
  - Intervertebral disc protrusion [Unknown]
  - Diabetes insipidus [Unknown]
  - Hypophosphataemia [Unknown]
